FAERS Safety Report 18761560 (Version 2)
Quarter: 2021Q2

REPORT INFORMATION
  Report Type: Report from Study
  Country: None (occurrence: US)
  Receive Date: 20210120
  Receipt Date: 20210421
  Transmission Date: 20210717
  Serious: No
  Sender: FDA-Public Use
  Company Number: US-ABBVIE-20K-163-3692834-00

PATIENT
  Sex: Male

DRUGS (2)
  1. HUMIRA [Suspect]
     Active Substance: ADALIMUMAB
     Route: 058
     Dates: start: 20210110
  2. HUMIRA [Suspect]
     Active Substance: ADALIMUMAB
     Indication: PSORIATIC ARTHROPATHY
     Route: 058
     Dates: start: 202010, end: 202012

REACTIONS (15)
  - Bronchitis [Recovered/Resolved]
  - Blue toe syndrome [Recovering/Resolving]
  - Peripheral swelling [Recovering/Resolving]
  - Joint effusion [Recovering/Resolving]
  - Joint range of motion decreased [Recovering/Resolving]
  - Fatigue [Unknown]
  - Mobility decreased [Unknown]
  - Headache [Unknown]
  - Arthralgia [Recovering/Resolving]
  - Impaired self-care [Recovering/Resolving]
  - Gait disturbance [Recovering/Resolving]
  - Pain in extremity [Recovering/Resolving]
  - Joint stiffness [Recovering/Resolving]
  - Joint swelling [Recovering/Resolving]
  - Loss of personal independence in daily activities [Unknown]

NARRATIVE: CASE EVENT DATE: 2020
